FAERS Safety Report 5757574-8 (Version None)
Quarter: 2008Q2

REPORT INFORMATION
  Report Type: 
  Country: None (occurrence: None)
  Receive Date: 20080603
  Receipt Date: 20080522
  Transmission Date: 20081010
  Serious: Yes (Other)
  Sender: FDA-Public Use
  Company Number: US-PFIZER INC-2008045127

PATIENT
  Sex: Female
  Weight: 84 kg

DRUGS (2)
  1. CHANTIX [Suspect]
     Indication: SMOKING CESSATION THERAPY
     Dates: start: 20080429, end: 20080508
  2. RANITIDINE [Concomitant]

REACTIONS (2)
  - BLOOD CHOLESTEROL INCREASED [None]
  - DEPRESSION [None]
